FAERS Safety Report 18066434 (Version 1)
Quarter: 2020Q3

REPORT INFORMATION
  Report Type: Spontaneous
  Country: US (occurrence: US)
  Receive Date: 20200724
  Receipt Date: 20200724
  Transmission Date: 20201103
  Serious: Yes (Hospitalization, Disabling, Other)
  Sender: FDA-Public Use
  Company Number: US-009507513-1009USA04498

PATIENT
  Sex: Female

DRUGS (7)
  1. FOSAMAX [Suspect]
     Active Substance: ALENDRONATE SODIUM
     Indication: OSTEOPENIA
     Dosage: 70 MG, QW
     Route: 048
     Dates: start: 20090316, end: 20090526
  2. METHOTREXATE (METHOTREXATE SODIUM) [Concomitant]
     Active Substance: METHOTREXATE SODIUM
     Indication: RHEUMATOID ARTHRITIS
     Dosage: UNK
     Dates: start: 1995
  3. CALCIUM (UNSPECIFIED) [Concomitant]
     Active Substance: CALCIUM
  4. SYNTHROID [Concomitant]
     Active Substance: LEVOTHYROXINE SODIUM
     Indication: THYROID DISORDER
     Dates: start: 1980
  5. FOSAMAX [Suspect]
     Active Substance: ALENDRONATE SODIUM
     Indication: OSTEOPOROSIS
     Dosage: 70 MG, QW
     Route: 048
     Dates: start: 19971219, end: 20090709
  6. ENBREL [Concomitant]
     Active Substance: ETANERCEPT
     Indication: RHEUMATOID ARTHRITIS
     Dates: start: 2000
  7. EASPRIN [Concomitant]
     Active Substance: ASPIRIN
     Indication: RHEUMATOID ARTHRITIS
     Dates: start: 1987, end: 2008

REACTIONS (56)
  - Femur fracture [Unknown]
  - Osteomyelitis [Unknown]
  - Type IIa hyperlipidaemia [Unknown]
  - Fall [Unknown]
  - Rheumatoid arthritis [Not Recovered/Not Resolved]
  - Blood cholesterol increased [Not Recovered/Not Resolved]
  - Gastrooesophageal reflux disease [Not Recovered/Not Resolved]
  - Diverticulum [Unknown]
  - Hyperlipidaemia [Not Recovered/Not Resolved]
  - Melanocytic naevus [Unknown]
  - Intervertebral disc degeneration [Unknown]
  - Spondylolisthesis [Unknown]
  - Adverse drug reaction [Unknown]
  - Osteonecrosis of jaw [Unknown]
  - Spinal compression fracture [Unknown]
  - Bone disorder [Unknown]
  - Sinusitis [Unknown]
  - Cellulitis [Recovering/Resolving]
  - Submaxillary gland enlargement [Unknown]
  - Duodenitis [Unknown]
  - Hiatus hernia [Unknown]
  - Large intestine polyp [Unknown]
  - Pain [Unknown]
  - Malignant melanoma stage II [Unknown]
  - Fall [Unknown]
  - Gastritis [Unknown]
  - Adenoma benign [Unknown]
  - Seborrhoeic keratosis [Unknown]
  - Foot fracture [Unknown]
  - Dermatitis contact [Unknown]
  - Back pain [Unknown]
  - Spinal stenosis [Unknown]
  - Osteoarthritis [Unknown]
  - Folate deficiency [Unknown]
  - Rib fracture [Recovering/Resolving]
  - Diarrhoea [Recovered/Resolved]
  - Fatigue [Unknown]
  - Tenderness [Unknown]
  - Tonsillar disorder [Unknown]
  - Dental caries [Unknown]
  - Vitamin B12 deficiency [Not Recovered/Not Resolved]
  - Oedema peripheral [Unknown]
  - Mean cell volume increased [Unknown]
  - Arthropathy [Unknown]
  - Pulmonary mass [Unknown]
  - Abscess [Unknown]
  - Stress fracture [Unknown]
  - Gingivitis [Unknown]
  - Trichoglossia [Unknown]
  - Bronchitis [Unknown]
  - Clostridium difficile infection [Unknown]
  - Femur fracture [Unknown]
  - Dyslipidaemia [Unknown]
  - Foot fracture [Unknown]
  - Macrocytosis [Unknown]
  - Gastric disorder [Not Recovered/Not Resolved]

NARRATIVE: CASE EVENT DATE: 2000
